FAERS Safety Report 19073276 (Version 2)
Quarter: 2025Q3

REPORT INFORMATION
  Report Type: Spontaneous
  Country: CA (occurrence: CA)
  Receive Date: 20210330
  Receipt Date: 20250714
  Transmission Date: 20251021
  Serious: Yes (Hospitalization, Other)
  Sender: PFIZER
  Company Number: CA-TAKEDA-2021TUS017863

PATIENT
  Age: 62 Year
  Sex: Female

DRUGS (16)
  1. PANTOPRAZOLE [Interacting]
     Active Substance: PANTOPRAZOLE
     Route: 065
  2. MEKINIST [Interacting]
     Active Substance: TRAMETINIB DIMETHYL SULFOXIDE
     Indication: Metastatic malignant melanoma
     Route: 048
  3. MEKINIST [Interacting]
     Active Substance: TRAMETINIB DIMETHYL SULFOXIDE
     Route: 048
     Dates: start: 20200106, end: 20200206
  4. MEKINIST [Interacting]
     Active Substance: TRAMETINIB DIMETHYL SULFOXIDE
     Route: 048
     Dates: start: 20200324
  5. MEKINIST [Interacting]
     Active Substance: TRAMETINIB DIMETHYL SULFOXIDE
     Route: 065
     Dates: start: 20200506, end: 20200606
  6. MEKINIST [Interacting]
     Active Substance: TRAMETINIB DIMETHYL SULFOXIDE
     Route: 065
     Dates: start: 20200823
  7. MEKINIST [Interacting]
     Active Substance: TRAMETINIB DIMETHYL SULFOXIDE
     Route: 048
  8. TAFINLAR [Interacting]
     Active Substance: DABRAFENIB MESYLATE
     Indication: Metastatic malignant melanoma
     Route: 048
     Dates: end: 20200805
  9. TAFINLAR [Interacting]
     Active Substance: DABRAFENIB MESYLATE
     Route: 048
  10. TAFINLAR [Interacting]
     Active Substance: DABRAFENIB MESYLATE
     Route: 065
     Dates: start: 20200106, end: 20200206
  11. TAFINLAR [Interacting]
     Active Substance: DABRAFENIB MESYLATE
     Route: 048
     Dates: start: 20200506, end: 20200606
  12. TAFINLAR [Interacting]
     Active Substance: DABRAFENIB MESYLATE
     Route: 048
     Dates: start: 20200823
  13. TAFINLAR [Interacting]
     Active Substance: DABRAFENIB MESYLATE
     Route: 048
     Dates: start: 20200823
  14. TAFINLAR [Interacting]
     Active Substance: DABRAFENIB MESYLATE
     Route: 065
  15. TAFINLAR [Interacting]
     Active Substance: DABRAFENIB MESYLATE
     Route: 048
  16. ZANTAC [Interacting]
     Active Substance: RANITIDINE HYDROCHLORIDE
     Route: 065

REACTIONS (21)
  - Arthralgia [Unknown]
  - Asthenia [Unknown]
  - Bone pain [Unknown]
  - Cellulitis [Unknown]
  - Chills [Unknown]
  - Constipation [Unknown]
  - Diarrhoea [Unknown]
  - Dizziness [Unknown]
  - Drug interaction [Unknown]
  - Dysgeusia [Unknown]
  - Dyspepsia [Unknown]
  - Fatigue [Unknown]
  - Feeling abnormal [Recovering/Resolving]
  - Headache [Unknown]
  - Nausea [Unknown]
  - Neck pain [Unknown]
  - Pain [Unknown]
  - Pyrexia [Unknown]
  - Taste disorder [Unknown]
  - Uveitis [Unknown]
  - Vomiting [Unknown]

NARRATIVE: CASE EVENT DATE: 20200401
